FAERS Safety Report 13281702 (Version 4)
Quarter: 2017Q4

REPORT INFORMATION
  Report Type: Spontaneous
  Country: US (occurrence: US)
  Receive Date: 20170301
  Receipt Date: 20171213
  Transmission Date: 20180320
  Serious: No
  Sender: FDA-Public Use
  Company Number: US-PFIZER INC-2017085499

PATIENT
  Age: 55 Year
  Sex: Male

DRUGS (2)
  1. XELJANZ [Suspect]
     Active Substance: TOFACITINIB CITRATE
     Dosage: 5 MG, UNK
     Dates: start: 201606
  2. XELJANZ [Suspect]
     Active Substance: TOFACITINIB CITRATE
     Dosage: 5 MG, UNK

REACTIONS (7)
  - Tinnitus [Unknown]
  - Dizziness [Unknown]
  - Head discomfort [Not Recovered/Not Resolved]
  - Cold sweat [Unknown]
  - Dry eye [Unknown]
  - Feeling hot [Unknown]
  - Neck pain [Unknown]

NARRATIVE: CASE EVENT DATE: 20170813
